FAERS Safety Report 4633969-0 (Version None)
Quarter: 2005Q2

REPORT INFORMATION
  Report Type: 
  Country: None (occurrence: None)
  Receive Date: 20050407
  Receipt Date: 20050324
  Transmission Date: 20051028
  Serious: Yes (Hospitalization)
  Sender: FDA-Public Use
  Company Number: 2005-BP-03303BP

PATIENT
  Sex: Female

DRUGS (2)
  1. MOBIC [Suspect]
     Indication: OSTEOARTHRITIS
     Dosage: SEE IMAGE, ORAL
     Route: 048
     Dates: start: 20010101
  2. MOBIC [Suspect]
     Indication: OSTEOARTHRITIS
     Dosage: SEE IMAGE, ORAL
     Route: 048
     Dates: start: 20050201

REACTIONS (3)
  - DIPLOPIA [None]
  - INTRACRANIAL ANEURYSM [None]
  - SKIN DISCOLOURATION [None]
